FAERS Safety Report 10380317 (Version 1)
Quarter: 2014Q1

REPORT INFORMATION
  Report Type: Spontaneous
  Country: US (occurrence: None)
  Receive Date: 20140306
  Receipt Date: 20140306
  Transmission Date: 20141002
  Serious: Yes (Other)
  Sender: FDA-Public Use
  Company Number: 163-21880-13074315

PATIENT
  Age: 70 Year
  Sex: Female

DRUGS (4)
  1. REVLIMID (LENALIDOMIDE)(10 MILLIGRAM, CAPSULES) [Suspect]
     Indication: PLASMACYTOMA
     Route: 048
     Dates: start: 201306
  2. XANAX (ALPRAZOLAM) [Concomitant]
  3. ARMOUR THYROID [Concomitant]
  4. OMEPRAZOLE [Concomitant]

REACTIONS (6)
  - Burning sensation [None]
  - Pruritus [None]
  - Pain in extremity [None]
  - Malaise [None]
  - Nausea [None]
  - Muscle spasms [None]
